FAERS Safety Report 11421371 (Version 1)
Quarter: 2015Q3

REPORT INFORMATION
  Report Type: Report from Study
  Country: CL (occurrence: CL)
  Receive Date: 20150826
  Receipt Date: 20150826
  Transmission Date: 20151125
  Serious: Yes (Hospitalization)
  Sender: FDA-Public Use
  Company Number: CL-ABBVIE-15P-034-1451338-00

PATIENT
  Age: 0 Year
  Sex: Male

DRUGS (10)
  1. SYNAGIS [Suspect]
     Active Substance: PALIVIZUMAB
     Route: 030
     Dates: start: 20150820, end: 20150820
  2. FOLIC ACID. [Concomitant]
     Active Substance: FOLIC ACID
     Indication: PREMATURE BABY
     Route: 048
  3. ZINC [Concomitant]
     Active Substance: ZINC\ZINC CHLORIDE
     Indication: PREMATURE BABY
     Route: 048
     Dates: start: 20141210
  4. ACEVIT [Concomitant]
     Indication: PREMATURE BABY
     Route: 048
     Dates: start: 20141210
  5. IRON [Concomitant]
     Active Substance: IRON
     Indication: PREMATURE BABY
     Dates: start: 20141210
  6. FLUTICASONE [Concomitant]
     Active Substance: FLUTICASONE\FLUTICASONE PROPIONATE
     Indication: ASTHMA
     Route: 055
     Dates: start: 20141210
  7. SYNAGIS [Suspect]
     Active Substance: PALIVIZUMAB
     Indication: ANTIVIRAL PROPHYLAXIS
     Dosage: 122 MILLIGRAMS
     Route: 030
     Dates: start: 20150626, end: 20150626
  8. HYDROCHLOROTHIAZIDE. [Concomitant]
     Active Substance: HYDROCHLOROTHIAZIDE
     Indication: DIURETIC THERAPY
     Route: 048
     Dates: start: 20141210
  9. MONTELUKAST [Concomitant]
     Active Substance: MONTELUKAST SODIUM
     Indication: ASTHMA
     Dates: start: 20141210
  10. SPIRONOLACTONE. [Concomitant]
     Active Substance: SPIRONOLACTONE
     Indication: DIURETIC THERAPY
     Route: 048
     Dates: start: 20141210

REACTIONS (6)
  - Interstitial lung disease [Recovered/Resolved]
  - Wheezing [Unknown]
  - Use of accessory respiratory muscles [Unknown]
  - Tachypnoea [Unknown]
  - Bronchial obstruction [Unknown]
  - Rhinorrhoea [Unknown]

NARRATIVE: CASE EVENT DATE: 2015
